FAERS Safety Report 14685553 (Version 1)
Quarter: 2018Q1

REPORT INFORMATION
  Report Type: Spontaneous
  Country: US (occurrence: US)
  Receive Date: 20180327
  Receipt Date: 20180327
  Transmission Date: 20180509
  Serious: No
  Sender: FDA-Public Use
  Company Number: US-BAYER-2018-050076

PATIENT
  Age: 71 Year
  Sex: Male

DRUGS (3)
  1. ALKA-SELTZER PLUS SEVERE COLD AND FLU FORMULA [Suspect]
     Active Substance: ACETAMINOPHEN\CHLORPHENIRAMINE\DEXTROMETHORPHAN\PHENYLEPHRINE
     Dosage: UNK
     Route: 048
  2. ALEVE [Suspect]
     Active Substance: NAPROXEN SODIUM
     Indication: PAIN
     Dosage: UNK
     Route: 048
  3. METFORMIN [Concomitant]
     Active Substance: METFORMIN HYDROCHLORIDE

REACTIONS (5)
  - Poor quality drug administered [Unknown]
  - Drug ineffective [Unknown]
  - Product use in unapproved indication [Unknown]
  - Therapeutic response unexpected [Unknown]
  - Abdominal discomfort [None]
